FAERS Safety Report 16006723 (Version 2)
Quarter: 2019Q1

REPORT INFORMATION
  Report Type: Spontaneous
  Country: FR (occurrence: FR)
  Receive Date: 20190226
  Receipt Date: 20190227
  Transmission Date: 20190418
  Serious: Yes (Life-Threatening, Other)
  Sender: FDA-Public Use
  Company Number: FR-MYLANLABS-2019M1016087

PATIENT
  Age: 46 Year
  Sex: Male

DRUGS (3)
  1. ETOPOSIDE. [Suspect]
     Active Substance: ETOPOSIDE
     Indication: TESTICULAR SEMINOMA (PURE) STAGE III
     Dosage: 4 CYCLICAL (SYSTEMIC CHEMOTHERAPY)
     Route: 065
  2. BLEOMYCIN [Suspect]
     Active Substance: BLEOMYCIN SULFATE
     Indication: TESTICULAR SEMINOMA (PURE) STAGE III
     Dosage: 4 CYCLICAL (SYSTEMIC CHEMOTHERAPY)
  3. CISPLATIN. [Suspect]
     Active Substance: CISPLATIN
     Indication: TESTICULAR SEMINOMA (PURE) STAGE III
     Dosage: 4 CYCLICAL (SYSTEMIC CHEMOTHERAPY)

REACTIONS (5)
  - Chloroma [Unknown]
  - Lymphadenopathy mediastinal [Unknown]
  - Acute monocytic leukaemia [Unknown]
  - Abdominal lymphadenopathy [Unknown]
  - Peritoneal sarcoma [Unknown]
